FAERS Safety Report 10334402 (Version 1)
Quarter: 2014Q3

REPORT INFORMATION
  Report Type: Spontaneous
  Country: US (occurrence: US)
  Receive Date: 20140723
  Receipt Date: 20140723
  Transmission Date: 20150326
  Serious: Yes (Other)
  Sender: FDA-Public Use
  Company Number: US-SUN PHARMACEUTICAL INDUSTRIES LTD-2014SUN01580

PATIENT
  Age: 69 Year
  Sex: Male

DRUGS (5)
  1. BICALUTAMIDE TABS 50MG [Suspect]
     Active Substance: BICALUTAMIDE
     Dosage: ONCE WEEKLY
     Route: 048
  2. BICALUTAMIDE TABS 50MG [Suspect]
     Active Substance: BICALUTAMIDE
     Dosage: ONCE EVERY OTHER WEEK
     Route: 048
  3. BICALUTAMIDE TABS 50MG [Suspect]
     Active Substance: BICALUTAMIDE
     Indication: PRIAPISM
     Dosage: DAILY
     Route: 048
  4. BICALUTAMIDE TABS 50MG [Suspect]
     Active Substance: BICALUTAMIDE
     Dosage: TWICE WEEKLY
     Route: 048
  5. HYDROCHLOROTHIAZIDE. [Concomitant]
     Active Substance: HYDROCHLOROTHIAZIDE
     Indication: HYPERTENSION

REACTIONS (6)
  - Gynaecomastia [Recovered/Resolved]
  - Prostate cancer [Unknown]
  - Testicular atrophy [Recovered/Resolved]
  - Laboratory test interference [Unknown]
  - Erectile dysfunction [Recovered/Resolved]
  - Libido decreased [Recovered/Resolved]
